FAERS Safety Report 25450921 (Version 4)
Quarter: 2025Q3

REPORT INFORMATION
  Report Type: Spontaneous
  Country: JP (occurrence: JP)
  Receive Date: 20250618
  Receipt Date: 20250805
  Transmission Date: 20251021
  Serious: Yes (Other)
  Sender: MALLINCKRODT
  Company Number: JP-MALLINCKRODT-MNK202503748

PATIENT
  Age: 9 Decade
  Sex: Female

DRUGS (11)
  1. AMITIZA [Suspect]
     Active Substance: LUBIPROSTONE
     Indication: Constipation
     Route: 048
  2. ATORVASTATIN [Concomitant]
     Active Substance: ATORVASTATIN
     Dosage: AFTER BREAKFAST
  3. EZETIMIBE [Concomitant]
     Active Substance: EZETIMIBE
     Dosage: AFTER BREAKFAST
  4. LEVOTHYROXINE SODIUM [Concomitant]
     Active Substance: LEVOTHYROXINE SODIUM
     Dosage: AFTER BREAKFAST
  5. LEVOTHYROXINE SODIUM [Concomitant]
     Active Substance: LEVOTHYROXINE SODIUM
     Dosage: AFTER BREAKFAST
  6. MIRABEGRON [Concomitant]
     Active Substance: MIRABEGRON
     Dosage: AFTER BREAKFAST
  7. VONOPRAZAN FUMARATE [Concomitant]
     Active Substance: VONOPRAZAN FUMARATE
     Dosage: AFTER BREAKFAST
  8. CLOPIDOGREL [Concomitant]
     Active Substance: CLOPIDOGREL BISULFATE
     Dosage: AFTER BREAKFAST
  9. BEPOTASTINE BESILATE [Concomitant]
     Active Substance: BEPOTASTINE BESILATE
     Dosage: AFTER BREAKFAST, AFTER DINNER
  10. RAMELTEON [Concomitant]
     Active Substance: RAMELTEON
     Indication: Insomnia
     Dosage: AFTER DINNER
  11. DAYVIGO [Concomitant]
     Active Substance: LEMBOREXANT
     Indication: Insomnia
     Dosage: BEFORE BED

REACTIONS (1)
  - Enterocolitis [Recovered/Resolved]
